FAERS Safety Report 14687801 (Version 1)
Quarter: 2018Q1

REPORT INFORMATION
  Report Type: Spontaneous
  Country: GR (occurrence: GR)
  Receive Date: 20180328
  Receipt Date: 20180328
  Transmission Date: 20180509
  Serious: Yes (Other)
  Sender: FDA-Public Use
  Company Number: GR-009507513-1803GRC007943

PATIENT
  Age: 68 Year
  Sex: Female

DRUGS (3)
  1. EZETROL [Suspect]
     Active Substance: EZETIMIBE
     Indication: DYSLIPIDAEMIA
     Dosage: 1 DF, QD
     Route: 048
     Dates: start: 201503, end: 201503
  2. LEPUR [Suspect]
     Active Substance: SIMVASTATIN
     Indication: DYSLIPIDAEMIA
     Dosage: 1 DF, QD
     Route: 048
     Dates: start: 201309, end: 201309
  3. PRAVACHOL [Suspect]
     Active Substance: PRAVASTATIN SODIUM
     Indication: DYSLIPIDAEMIA
     Dosage: 1 DF, QD
     Route: 048
     Dates: start: 201503, end: 201503

REACTIONS (6)
  - Myopathy [Recovered/Resolved]
  - Hepatic enzyme abnormal [Recovered/Resolved]
  - Myopathy [Recovered/Resolved]
  - Myopathy [Recovered/Resolved]
  - Hepatic enzyme abnormal [Recovered/Resolved]
  - Hepatic enzyme abnormal [Recovered/Resolved]

NARRATIVE: CASE EVENT DATE: 201309
